FAERS Safety Report 22611166 (Version 3)
Quarter: 2024Q1

REPORT INFORMATION
  Report Type: Spontaneous
  Country: US (occurrence: None)
  Receive Date: 20230616
  Receipt Date: 20240214
  Transmission Date: 20240410
  Serious: Yes (Death, Other)
  Sender: FDA-Public Use
  Company Number: 2023A139375

PATIENT
  Age: 58 Year
  Sex: Male

DRUGS (6)
  1. OSIMERTINIB [Suspect]
     Active Substance: OSIMERTINIB
     Indication: Non-small cell lung cancer stage IV
     Route: 048
  2. MIFEPRISTONE [Concomitant]
     Active Substance: MIFEPRISTONE
     Indication: Small cell lung cancer
     Route: 048
  3. PEMBROLIZUMAB [Concomitant]
     Active Substance: PEMBROLIZUMAB
  4. ATEZOLIZUMAB [Concomitant]
     Active Substance: ATEZOLIZUMAB
  5. CAMRELIZUMAB [Concomitant]
     Active Substance: CAMRELIZUMAB
  6. ANLOTOTINIB [Concomitant]

REACTIONS (4)
  - Malignant transformation [Fatal]
  - Malignant neoplasm progression [Fatal]
  - Drug resistance [Unknown]
  - Pleural effusion [Unknown]
